FAERS Safety Report 21866256 (Version 2)
Quarter: 2023Q1

REPORT INFORMATION
  Report Type: Spontaneous
  Country: US (occurrence: US)
  Receive Date: 20230116
  Receipt Date: 20230201
  Transmission Date: 20230417
  Serious: No
  Sender: FDA-Public Use
  Company Number: US-AMGEN-USASP2022222092

PATIENT
  Age: 71 Year
  Sex: Female
  Weight: 100.68 kg

DRUGS (1)
  1. PROLIA [Suspect]
     Active Substance: DENOSUMAB
     Indication: Product used for unknown indication
     Dosage: 60 MILLIGRAM, Q6MO
     Route: 058
     Dates: start: 20160928

REACTIONS (1)
  - Head deformity [Not Recovered/Not Resolved]

NARRATIVE: CASE EVENT DATE: 20221220
